FAERS Safety Report 5498813-0 (Version None)
Quarter: 2007Q4

REPORT INFORMATION
  Report Type: 
  Country: None (occurrence: None)
  Receive Date: 20071026
  Receipt Date: 20070720
  Transmission Date: 20080405
  Serious: No
  Sender: FDA-Public Use
  Company Number: A0665408A

PATIENT
  Age: 64 Year
  Sex: Female

DRUGS (5)
  1. ADVAIR DISKUS 100/50 [Suspect]
     Indication: ASTHMA
     Route: 055
     Dates: start: 20060701, end: 20070720
  2. SINGULAIR [Concomitant]
  3. DIOVAN [Concomitant]
  4. TOPROL-XL [Concomitant]
  5. CRESTOR [Concomitant]

REACTIONS (2)
  - DYSPHONIA [None]
  - LARYNGITIS [None]
